FAERS Safety Report 7325257-9 (Version None)
Quarter: 2011Q1

REPORT INFORMATION
  Report Type: 
  Country: None (occurrence: None)
  Receive Date: 20110302
  Receipt Date: 20110228
  Transmission Date: 20110831
  Serious: No
  Sender: FDA-Public Use
  Company Number: US-PFIZER INC-2011044275

PATIENT
  Sex: Female
  Weight: 53.061 kg

DRUGS (5)
  1. SIMVASTATIN [Concomitant]
     Indication: BLOOD CHOLESTEROL INCREASED
     Dosage: 10 MG, 1X/DAY
  2. FENTANYL [Concomitant]
     Indication: ARTHRITIS
     Dosage: UNK
  3. CHANTIX [Suspect]
     Indication: SMOKING CESSATION THERAPY
     Dosage: UNK
     Route: 048
     Dates: start: 20090101, end: 20090101
  4. XANAX [Concomitant]
     Indication: PANIC ATTACK
     Dosage: 2 MG, 2X/DAY
     Route: 048
  5. LACTULOSE [Concomitant]
     Indication: CONSTIPATION
     Dosage: UNK

REACTIONS (3)
  - NAUSEA [None]
  - DYSGEUSIA [None]
  - ABNORMAL DREAMS [None]
